FAERS Safety Report 9988202 (Version 1)
Quarter: 2014Q1

REPORT INFORMATION
  Report Type: Spontaneous
  Country: MX (occurrence: MX)
  Receive Date: 20140309
  Receipt Date: 20140309
  Transmission Date: 20141002
  Serious: Yes (Other)
  Sender: FDA-Public Use
  Company Number: PHHY2014MX028673

PATIENT
  Age: 80 Year
  Sex: Male

DRUGS (4)
  1. DIOVAN [Suspect]
     Indication: HYPERTENSION
     Dosage: 1 DF (400 MG) DAILY
     Route: 048
  2. DIOVAN [Suspect]
     Dosage: 0.5 DF (80 MG) DAILY
     Route: 048
  3. DIOVAN [Suspect]
     Dosage: 2 DF (40 MG) DAILY
     Route: 048
  4. AMLODIPINE [Concomitant]
     Indication: HYPERTENSION
     Dosage: 1 DF DAILY
     Dates: start: 2008

REACTIONS (4)
  - Gastrointestinal ulcer [Not Recovered/Not Resolved]
  - Blood pressure fluctuation [Not Recovered/Not Resolved]
  - Wrong technique in drug usage process [Not Recovered/Not Resolved]
  - Insomnia [Not Recovered/Not Resolved]
